FAERS Safety Report 24927942 (Version 1)
Quarter: 2025Q1

REPORT INFORMATION
  Report Type: Spontaneous
  Country: JP (occurrence: JP)
  Receive Date: 20250205
  Receipt Date: 20250205
  Transmission Date: 20250408
  Serious: Yes (Other)
  Sender: REGENERON
  Company Number: JP-BAYER-2025A014758

PATIENT

DRUGS (1)
  1. EYLEA HD [Suspect]
     Active Substance: AFLIBERCEPT
     Indication: Neovascular age-related macular degeneration

REACTIONS (2)
  - Blindness transient [Recovered/Resolved]
  - Visual impairment [Recovered/Resolved]
